FAERS Safety Report 10724950 (Version 18)
Quarter: 2015Q4

REPORT INFORMATION
  Report Type: Report from Study
  Country: US (occurrence: US)
  Receive Date: 20150120
  Receipt Date: 20151216
  Transmission Date: 20160304
  Serious: Yes (Hospitalization, Other)
  Sender: FDA-Public Use
  Company Number: US-ALEXION PHARMACEUTICALS INC-A201500114

PATIENT
  Age: 26 Year
  Sex: Female

DRUGS (3)
  1. SOLIRIS [Suspect]
     Active Substance: ECULIZUMAB
     Indication: HAEMOLYTIC URAEMIC SYNDROME
     Dosage: UNK
     Route: 042
  2. COMPAZINE [Concomitant]
     Active Substance: PROCHLORPERAZINE MALEATE
     Indication: NAUSEA
     Dosage: 10 MG, Q6H, PRN
     Route: 048
  3. SOLIRIS [Suspect]
     Active Substance: ECULIZUMAB
     Dosage: 1200 MG, Q2W
     Route: 042
     Dates: start: 20131021

REACTIONS (25)
  - Unevaluable event [Not Recovered/Not Resolved]
  - Thrombosis [Not Recovered/Not Resolved]
  - Dyspnoea [Unknown]
  - Pneumonia [Recovered/Resolved]
  - Abdominal pain [Not Recovered/Not Resolved]
  - Breast swelling [Unknown]
  - Peripheral swelling [Not Recovered/Not Resolved]
  - Arteriovenous fistula site complication [Not Recovered/Not Resolved]
  - Peripheral swelling [Unknown]
  - Tachycardia [Unknown]
  - Ascites [Unknown]
  - Haemoglobin decreased [Unknown]
  - Infection [Unknown]
  - Hypotension [Unknown]
  - Seizure [Unknown]
  - Fluid overload [Not Recovered/Not Resolved]
  - Thrombosis [Recovered/Resolved]
  - Breast swelling [Not Recovered/Not Resolved]
  - Dyspnoea [Not Recovered/Not Resolved]
  - Dyspnoea [Not Recovered/Not Resolved]
  - Catheter site haematoma [Unknown]
  - Haematoma [Unknown]
  - Dyspnoea [Not Recovered/Not Resolved]
  - Cough [Not Recovered/Not Resolved]
  - Peripheral swelling [Unknown]

NARRATIVE: CASE EVENT DATE: 20150107
